FAERS Safety Report 9851318 (Version 1)
Quarter: 2014Q1

REPORT INFORMATION
  Report Type: Report from Study
  Country: DE (occurrence: DE)
  Receive Date: 20140129
  Receipt Date: 20140129
  Transmission Date: 20141002
  Serious: Yes (Other)
  Sender: FDA-Public Use
  Company Number: DE-ROCHE-1338939

PATIENT
  Age: 57 Year
  Sex: Male
  Weight: 80 kg

DRUGS (6)
  1. PEG-INTERFERON ALFA 2A [Suspect]
     Indication: CHRONIC HEPATITIS C
     Route: 058
     Dates: start: 20131108
  2. RIBAVIRIN [Suspect]
     Indication: CHRONIC HEPATITIS C
     Route: 065
     Dates: start: 20131108
  3. HUMALOG [Concomitant]
     Indication: TYPE 2 DIABETES MELLITUS
     Route: 058
  4. METFORMIN [Concomitant]
     Indication: TYPE 2 DIABETES MELLITUS
     Dosage: 500 MG IN THE MORNING, 1000 MG IN THE EVENING
     Route: 065
  5. METOHEXAL (GERMANY) [Concomitant]
     Indication: HYPERTENSION
     Route: 065
  6. VALSARTAN [Concomitant]
     Indication: HYPERTENSION

REACTIONS (3)
  - Skin ulcer [Not Recovered/Not Resolved]
  - Pain [Not Recovered/Not Resolved]
  - Skin erosion [Not Recovered/Not Resolved]
